FAERS Safety Report 19669630 (Version 1)
Quarter: 2021Q3

REPORT INFORMATION
  Report Type: Spontaneous
  Country: US (occurrence: US)
  Receive Date: 20210806
  Receipt Date: 20210806
  Transmission Date: 20211014
  Serious: No
  Sender: FDA-Public Use
  Company Number: US-GLAXOSMITHKLINE-US2021166437

PATIENT

DRUGS (1)
  1. SOTROVIMAB AUTHORIZED UNDER INTERIM ORDER/EMERGENCY USE FOR THE TREATM [Suspect]
     Active Substance: SOTROVIMAB
     Indication: PRODUCT USE IN UNAPPROVED INDICATION
     Dosage: UNK

REACTIONS (1)
  - Product storage error [Unknown]

NARRATIVE: CASE EVENT DATE: 20210731
